FAERS Safety Report 5072585-6 (Version None)
Quarter: 2006Q3

REPORT INFORMATION
  Report Type: 
  Country: None (occurrence: None)
  Receive Date: 20060807
  Receipt Date: 20060726
  Transmission Date: 20061208
  Serious: Yes (Life-Threatening, Hospitalization)
  Sender: FDA-Public Use
  Company Number: JP-JNJFOC-20060704107

PATIENT
  Sex: Female

DRUGS (11)
  1. RISPERDAL [Suspect]
     Route: 048
  2. RISPERDAL [Suspect]
     Indication: DEPRESSION
     Route: 048
  3. TOLEDOMIN [Concomitant]
     Indication: DEPRESSION
     Route: 048
  4. MEVALECT [Concomitant]
     Indication: HYPERLIPIDAEMIA
     Route: 048
  5. AMLODIN [Concomitant]
     Indication: HYPERTENSION
     Route: 048
  6. BLOSTAR M [Concomitant]
     Indication: ABDOMINAL PAIN UPPER
     Route: 048
  7. EUGLUCON [Concomitant]
     Indication: DIABETES MELLITUS
     Route: 048
  8. BLOPRESS [Concomitant]
     Indication: HYPERTENSION
     Route: 048
  9. U-PAN [Concomitant]
     Route: 048
  10. U-PAN [Concomitant]
     Indication: DEPRESSION
     Route: 048
  11. ALLOPURINOL [Concomitant]
     Route: 048

REACTIONS (3)
  - DEPRESSED LEVEL OF CONSCIOUSNESS [None]
  - HYPONATRAEMIA [None]
  - INAPPROPRIATE ANTIDIURETIC HORMONE SECRETION [None]
